FAERS Safety Report 7093777-0 (Version None)
Quarter: 2010Q4

REPORT INFORMATION
  Report Type: 
  Country: None (occurrence: None)
  Receive Date: 20101110
  Receipt Date: 20101101
  Transmission Date: 20110411
  Serious: Yes (Hospitalization)
  Sender: FDA-Public Use
  Company Number: US-NOVOPROD-317483

PATIENT
  Sex: Female
  Weight: 84.354 kg

DRUGS (6)
  1. VICTOZA [Suspect]
     Indication: TYPE 2 DIABETES MELLITUS
     Dosage: 1.2 U, QD
     Route: 058
     Dates: start: 20100524, end: 20101031
  2. ACTOS [Concomitant]
     Indication: TYPE 2 DIABETES MELLITUS
  3. GLYBURIDE [Concomitant]
     Indication: TYPE 2 DIABETES MELLITUS
  4. NORVASC [Concomitant]
     Indication: HYPERTENSION
  5. BENICAR [Concomitant]
     Indication: HYPERTENSION
  6. MAXZIDE [Concomitant]
     Indication: HYPERTENSION

REACTIONS (2)
  - DIARRHOEA [None]
  - HYPOTENSION [None]
